FAERS Safety Report 14666208 (Version 6)
Quarter: 2018Q2

REPORT INFORMATION
  Report Type: Report from Study
  Country: DE (occurrence: DE)
  Receive Date: 20180321
  Receipt Date: 20180523
  Transmission Date: 20180711
  Serious: Yes (Hospitalization, Other)
  Sender: FDA-Public Use
  Company Number: DE-TEVA-2018-DE-863340

PATIENT
  Age: 66 Year
  Sex: Male
  Weight: 52 kg

DRUGS (10)
  1. PEGYLATED LIPOSOMAL IRINOTECAN [Suspect]
     Active Substance: IRINOTECAN HYDROCHLORIDE
     Indication: OFF LABEL USE
     Dosage: 250 MG, UNK
     Route: 065
     Dates: start: 20171013
  2. PANITUMUMAB [Suspect]
     Active Substance: PANITUMUMAB
     Indication: COLORECTAL CANCER METASTATIC
     Route: 042
     Dates: start: 20180103
  3. FLUOROURACIL. [Suspect]
     Active Substance: FLUOROURACIL
     Route: 040
     Dates: start: 20180103
  4. PEGYLATED LIPOSOMAL IRINOTECAN [Suspect]
     Active Substance: IRINOTECAN HYDROCHLORIDE
     Indication: COLORECTAL CANCER METASTATIC
     Route: 065
     Dates: start: 20180103
  5. FLUOROURACIL. [Suspect]
     Active Substance: FLUOROURACIL
     Route: 042
     Dates: start: 20180104
  6. FLUOROURACIL. [Suspect]
     Active Substance: FLUOROURACIL
     Route: 040
     Dates: start: 20171013
  7. FLUOROURACIL. [Suspect]
     Active Substance: FLUOROURACIL
     Indication: COLORECTAL CANCER METASTATIC
     Route: 042
     Dates: start: 20180103
  8. FLUOROURACIL. [Suspect]
     Active Substance: FLUOROURACIL
     Route: 042
     Dates: start: 20171013
  9. CALCIUM FOLINATE [Suspect]
     Active Substance: LEUCOVORIN CALCIUM
     Indication: COLORECTAL CANCER METASTATIC
     Route: 065
     Dates: start: 20180103
  10. CALCIUM FOLINATE [Suspect]
     Active Substance: LEUCOVORIN CALCIUM
     Route: 065
     Dates: start: 20171013

REACTIONS (4)
  - Subclavian vein thrombosis [Not Recovered/Not Resolved]
  - Catheter site thrombosis [Not Recovered/Not Resolved]
  - Off label use [Unknown]
  - Vena cava thrombosis [Not Recovered/Not Resolved]

NARRATIVE: CASE EVENT DATE: 20180114
